FAERS Safety Report 13140325 (Version 2)
Quarter: 2017Q1

REPORT INFORMATION
  Report Type: Spontaneous
  Country: DE (occurrence: DE)
  Receive Date: 20170123
  Receipt Date: 20170214
  Transmission Date: 20170428
  Serious: Yes (Other)
  Sender: FDA-Public Use
  Company Number: DE-TEVA-729654GER

PATIENT
  Age: 88 Year
  Sex: Female

DRUGS (10)
  1. PREGABALIN. [Suspect]
     Active Substance: PREGABALIN
     Dosage: 25 MILLIGRAM DAILY;
     Route: 048
     Dates: start: 20150910
  2. PANTOPRAZOL [Concomitant]
     Active Substance: PANTOPRAZOLE SODIUM
     Route: 048
  3. PREGABALIN. [Suspect]
     Active Substance: PREGABALIN
     Route: 048
     Dates: end: 20150909
  4. SERTRALINE [Suspect]
     Active Substance: SERTRALINE HYDROCHLORIDE
     Dosage: 25 MILLIGRAM DAILY;
     Route: 048
     Dates: start: 201502, end: 20150910
  5. REKAWAN [Concomitant]
     Active Substance: POTASSIUM CHLORIDE
     Dosage: 1 DOSAGE FORMS DAILY;
     Route: 048
  6. ZOPICLON [Concomitant]
     Active Substance: ZOPICLONE
     Route: 048
  7. ALLOPURINOL. [Concomitant]
     Active Substance: ALLOPURINOL
     Route: 048
  8. VOMEX [Concomitant]
     Active Substance: DIMENHYDRINATE
     Route: 048
     Dates: start: 20150907, end: 20150911
  9. MELPERON [Suspect]
     Active Substance: MELPERONE
     Route: 048
  10. ENALAPRIL [Concomitant]
     Active Substance: ENALAPRIL
     Route: 048

REACTIONS (1)
  - Pleurothotonus [Recovered/Resolved]

NARRATIVE: CASE EVENT DATE: 20150910
